FAERS Safety Report 24689727 (Version 1)
Quarter: 2024Q4

REPORT INFORMATION
  Report Type: Spontaneous
  Country: US (occurrence: US)
  Receive Date: 20241203
  Receipt Date: 20241203
  Transmission Date: 20250115
  Serious: No
  Sender: MACLEODS
  Company Number: US-MACLEODS PHARMA-MAC2024050478

PATIENT

DRUGS (3)
  1. LEVOTHYROXINE [Suspect]
     Active Substance: LEVOTHYROXINE
     Indication: Graves^ disease
     Dosage: LICENSE NUMBER 33342-395, NDC NUMBER 33342-395
     Route: 065
     Dates: start: 20241114, end: 20241124
  2. ATENOLOL [Concomitant]
     Active Substance: ATENOLOL
     Indication: Blood pressure measurement
     Dosage: 25 MG TABLETS 1 TAB PER DAY
     Route: 065
  3. ATENOLOL [Concomitant]
     Active Substance: ATENOLOL
     Route: 065

REACTIONS (20)
  - Frequent bowel movements [Recovering/Resolving]
  - Urethral pain [Recovering/Resolving]
  - Chest pain [Recovering/Resolving]
  - Hypertension [Recovering/Resolving]
  - Eye pain [Recovering/Resolving]
  - Erythema [Recovering/Resolving]
  - Feeling hot [Recovering/Resolving]
  - Hot flush [Recovering/Resolving]
  - Blood urine present [Recovering/Resolving]
  - Pollakiuria [Recovering/Resolving]
  - Product dose omission issue [Unknown]
  - Tachycardia [Recovering/Resolving]
  - Nausea [Recovering/Resolving]
  - Headache [Recovering/Resolving]
  - Arthralgia [Recovering/Resolving]
  - Abdominal pain upper [Recovering/Resolving]
  - Fatigue [Recovering/Resolving]
  - Palpitations [Recovering/Resolving]
  - Diarrhoea [Recovering/Resolving]
  - Vomiting [Recovering/Resolving]

NARRATIVE: CASE EVENT DATE: 20241114
